FAERS Safety Report 7169775-5 (Version None)
Quarter: 2010Q4

REPORT INFORMATION
  Report Type: 
  Country: None (occurrence: None)
  Receive Date: 20101217
  Receipt Date: 20100707
  Transmission Date: 20110411
  Serious: Yes (Other)
  Sender: FDA-Public Use
  Company Number: A0862435A

PATIENT
  Age: 49 Year
  Sex: Male

DRUGS (2)
  1. SORIATANE [Suspect]
     Indication: PSORIASIS
     Dosage: 25MG PER DAY
     Route: 048
     Dates: start: 20091001, end: 20100122
  2. ISONIAZID [Concomitant]

REACTIONS (2)
  - ENZYME ABNORMALITY [None]
  - HEPATITIS [None]
